FAERS Safety Report 8833453 (Version 2)
Quarter: 2012Q4

REPORT INFORMATION
  Report Type: 
  Country: US (occurrence: US)
  Receive Date: 20121010
  Receipt Date: 20121030
  Transmission Date: 20130627
  Serious: No
  Sender: FDA-Public Use
  Company Number: US-VERTEX PHARMACEUTICAL INC.-2012-022191

PATIENT
  Age: 52 Year
  Sex: Male

DRUGS (11)
  1. INCIVEK [Suspect]
     Indication: HEPATITIS C
     Dosage: 750 mg, tid
     Route: 048
     Dates: start: 20120919
  2. PEGASYS [Suspect]
     Indication: HEPATITIS C
     Dosage: 180 ?g, UNK
     Route: 058
     Dates: start: 20120919
  3. RIBAPAK [Suspect]
     Indication: HEPATITIS C
     Dosage: 600 mg, bid
     Route: 048
     Dates: start: 20120919
  4. ADVAIR [Concomitant]
     Dosage: 250-50 mcg/dose
  5. FLUOCINONIDE [Concomitant]
     Dosage: UNK, prn
     Route: 061
     Dates: start: 20121019
  6. GEMFIBROZIL [Concomitant]
     Dosage: 600 mg, bid
     Route: 048
  7. HYDROCHLOROTHIAZIDE [Concomitant]
     Dosage: 25 mg, qd
     Route: 048
  8. HYDROXYZINE HCL [Concomitant]
     Dosage: 25 mg, UNK
     Route: 048
     Dates: start: 20121009
  9. OMEPRAZOLE [Concomitant]
     Dosage: 1 DF, bid
     Route: 048
     Dates: start: 20111110
  10. VENTOLIN HFA [Concomitant]
     Dosage: 1 DF, prn
  11. TRAZODONE [Concomitant]

REACTIONS (7)
  - Hordeolum [Unknown]
  - Lacrimation increased [Unknown]
  - Eye irritation [Unknown]
  - Oral mucosal blistering [Unknown]
  - Nasal congestion [Unknown]
  - Skin exfoliation [Recovered/Resolved]
  - Rash [Recovered/Resolved]
